FAERS Safety Report 22745933 (Version 2)
Quarter: 2024Q1

REPORT INFORMATION
  Report Type: Report from Study
  Country: US (occurrence: US)
  Receive Date: 20230725
  Receipt Date: 20240313
  Transmission Date: 20240410
  Serious: No
  Sender: FDA-Public Use
  Company Number: US-002147023-NVSC2023US161826

PATIENT
  Sex: Female

DRUGS (1)
  1. KISQALI [Suspect]
     Active Substance: RIBOCICLIB
     Indication: Product used for unknown indication
     Dosage: 150 MG
     Route: 048

REACTIONS (4)
  - Renal function test abnormal [Unknown]
  - Intentional product use issue [Unknown]
  - Blood glucose increased [Unknown]
  - Diarrhoea [Unknown]
